FAERS Safety Report 5039145-4 (Version None)
Quarter: 2006Q2

REPORT INFORMATION
  Report Type: 
  Country: None (occurrence: None)
  Receive Date: 20060629
  Receipt Date: 20060515
  Transmission Date: 20061013
  Serious: Yes (Hospitalization, Other)
  Sender: FDA-Public Use
  Company Number: NL-GLAXOSMITHKLINE-B0424919A

PATIENT
  Age: 27 Year
  Sex: Male

DRUGS (2)
  1. CEFTAZIDIME SODIUM [Suspect]
     Indication: CYSTIC FIBROSIS
     Route: 065
     Dates: start: 20060509
  2. TOBRAMYCIN [Concomitant]
     Dosage: 560MG PER DAY
     Route: 065
     Dates: start: 20060509

REACTIONS (4)
  - ACCIDENTAL OVERDOSE [None]
  - CONDITION AGGRAVATED [None]
  - CONVULSION [None]
  - DRUG INTERACTION [None]
